FAERS Safety Report 8442176-5 (Version None)
Quarter: 2012Q2

REPORT INFORMATION
  Report Type: 
  Country: None (occurrence: None)
  Receive Date: 20120615
  Receipt Date: 20120217
  Transmission Date: 20120825
  Serious: No
  Sender: FDA-Public Use
  Company Number: US-NOVEN-12US004127

PATIENT
  Sex: Male
  Weight: 19.501 kg

DRUGS (2)
  1. DAYTRANA [Suspect]
     Dosage: 10 MG, DAILY ON WEEKENDS
     Route: 062
     Dates: start: 20121101
  2. DAYTRANA [Suspect]
     Indication: ATTENTION DEFICIT/HYPERACTIVITY DISORDER
     Dosage: 15 MG, DAILY ON WEEKDAYS
     Dates: start: 20111101

REACTIONS (4)
  - OFF LABEL USE [None]
  - APPLICATION SITE ERYTHEMA [None]
  - APPLICATION SITE PRURITUS [None]
  - APPLICATION SITE RASH [None]
